FAERS Safety Report 17351654 (Version 1)
Quarter: 2020Q1

REPORT INFORMATION
  Report Type: Spontaneous
  Country: FR (occurrence: FR)
  Receive Date: 20200130
  Receipt Date: 20200130
  Transmission Date: 20200409
  Serious: Yes (Death)
  Sender: FDA-Public Use
  Company Number: FR-MYLANLABS-2020M1011594

PATIENT
  Age: 90 Year
  Sex: Male
  Weight: 58 kg

DRUGS (8)
  1. MONOPROST [Concomitant]
     Active Substance: LATANOPROST
     Indication: GLAUCOMA
     Dosage: 1 GTT DROPS, QD
     Route: 047
  2. SPECIAFOLDINE [Concomitant]
     Active Substance: FOLIC ACID
     Indication: ANAEMIA FOLATE DEFICIENCY
     Dosage: 10 MILLIGRAM, QW
     Route: 048
     Dates: start: 201907, end: 20191118
  3. KARDEGIC [Concomitant]
     Active Substance: ASPIRIN DL-LYSINE
     Indication: TEMPORAL ARTERITIS
     Dosage: 75 MILLIGRAM, QD
     Route: 048
     Dates: start: 201907, end: 20191116
  4. PREDNISONE. [Suspect]
     Active Substance: PREDNISONE
     Indication: TEMPORAL ARTERITIS
     Dosage: POSOLOGIE INITIALE 40 MG/J
     Route: 048
     Dates: start: 201907
  5. SOLU-MEDROL [Suspect]
     Active Substance: METHYLPREDNISOLONE SODIUM SUCCINATE
     Indication: TEMPORAL ARTERITIS
     Dosage: 900 MILLIGRAM, QD  (120 MG / 2 ML)
     Route: 040
     Dates: start: 20190718, end: 20190720
  6. METOJECT [Suspect]
     Active Substance: METHOTREXATE SODIUM
     Indication: TEMPORAL ARTERITIS
     Dosage: 15 MILLIGRAM, QW (15 MG / 0.30 ML)
     Route: 058
     Dates: start: 20190920, end: 20191118
  7. SOLU-MEDROL [Suspect]
     Active Substance: METHYLPREDNISOLONE SODIUM SUCCINATE
     Dosage: 900 MILLIGRAM, QD (120 MG / 2 ML)
     Route: 040
     Dates: start: 20190920, end: 20190922
  8. ZOXAN                              /00639302/ [Concomitant]
     Active Substance: DOXAZOSIN MESYLATE
     Indication: BENIGN PROSTATIC HYPERPLASIA
     Dosage: 4 MILLIGRAM, QD
     Route: 048

REACTIONS (1)
  - Pneumonia [Fatal]

NARRATIVE: CASE EVENT DATE: 20191115
